FAERS Safety Report 17451865 (Version 2)
Quarter: 2020Q1

REPORT INFORMATION
  Report Type: Report from Study
  Country: PL (occurrence: PL)
  Receive Date: 20200224
  Receipt Date: 20200303
  Transmission Date: 20200409
  Serious: Yes (Death)
  Sender: FDA-Public Use
  Company Number: PL-EISAI MEDICAL RESEARCH-EC-2020-070576

PATIENT
  Age: 67 Year
  Sex: Male
  Weight: 64.5 kg

DRUGS (8)
  1. LENVATINIB [Suspect]
     Active Substance: LENVATINIB
     Indication: HEPATOCELLULAR CARCINOMA
     Dosage: FLUCTUATED DOSAGE
     Route: 048
     Dates: start: 20190814, end: 20191102
  2. CARVEDILOL RATIOPHARM [Concomitant]
     Active Substance: CARVEDILOL
     Dates: start: 201401, end: 20191214
  3. PLACEBO [Suspect]
     Active Substance: UNSPECIFIED INGREDIENT
     Indication: HEPATOCELLULAR CARCINOMA
     Route: 041
     Dates: start: 20190814, end: 20190925
  4. AMLOZEK [Concomitant]
     Active Substance: AMLODIPINE BESYLATE
     Dates: start: 20190828, end: 20191214
  5. PLACEBO [Suspect]
     Active Substance: UNSPECIFIED INGREDIENT
     Route: 041
     Dates: start: 20191016, end: 20191016
  6. HALIDOR [Concomitant]
     Dates: start: 20190705, end: 20191214
  7. LENVATINIB [Suspect]
     Active Substance: LENVATINIB
     Route: 048
     Dates: start: 20191103, end: 20191103
  8. LISINORATIO [Concomitant]
     Dates: start: 201401, end: 20191214

REACTIONS (1)
  - Hepatic failure [Fatal]

NARRATIVE: CASE EVENT DATE: 20191213
